FAERS Safety Report 17519274 (Version 1)
Quarter: 2020Q1

REPORT INFORMATION
  Report Type: Spontaneous
  Country: US (occurrence: US)
  Receive Date: 20200310
  Receipt Date: 20200310
  Transmission Date: 20200409
  Serious: No
  Sender: FDA-Public Use
  Company Number: US-ALLERGAN-1916907US

PATIENT
  Sex: Female

DRUGS (1)
  1. ESTRACE [Suspect]
     Active Substance: ESTRADIOL
     Indication: VULVOVAGINITIS
     Dosage: 5 GRAMS OVER THREE NIGHTS
     Route: 065

REACTIONS (2)
  - Prescribed underdose [Unknown]
  - Accidental overdose [Unknown]
